FAERS Safety Report 14922084 (Version 1)
Quarter: 2018Q2

REPORT INFORMATION
  Report Type: Spontaneous
  Country: FR (occurrence: FR)
  Receive Date: 20180522
  Receipt Date: 20180522
  Transmission Date: 20180711
  Serious: Yes (Other)
  Sender: FDA-Public Use
  Company Number: FR-MERCK KGAA-2048214

PATIENT
  Age: 59 Year
  Sex: Female

DRUGS (1)
  1. NOVOTHYROX [Suspect]
     Active Substance: LEVOTHYROXINE SODIUM
     Indication: GOITRE

REACTIONS (27)
  - General physical health deterioration [None]
  - Impaired work ability [None]
  - Crying [None]
  - Basophil count increased [None]
  - Headache [None]
  - Social avoidant behaviour [None]
  - Osteoporosis [None]
  - Gastrointestinal disorder [None]
  - Constipation [None]
  - Marital problem [None]
  - Lymphocyte morphology abnormal [None]
  - Mood altered [None]
  - Amnesia [None]
  - Lymphocyte count increased [None]
  - Alopecia [None]
  - Gastrointestinal motility disorder [None]
  - Hiatus hernia [None]
  - White blood cell disorder [None]
  - Chronic lymphocytic leukaemia [None]
  - Visual impairment [None]
  - Fatigue [None]
  - Irritability [None]
  - Impaired driving ability [None]
  - Visual acuity reduced [None]
  - Dizziness [None]
  - Loss of personal independence in daily activities [None]
  - White blood cell count increased [None]

NARRATIVE: CASE EVENT DATE: 201703
